FAERS Safety Report 6566025-5 (Version None)
Quarter: 2010Q1

REPORT INFORMATION
  Report Type: 
  Country: None (occurrence: None)
  Receive Date: 20100129
  Receipt Date: 20100129
  Transmission Date: 20100710
  Serious: Yes (Other)
  Sender: FDA-Public Use
  Company Number: None

PATIENT
  Sex: Female
  Weight: 63.9572 kg

DRUGS (2)
  1. BONIVA [Suspect]
     Indication: OSTEOPOROSIS
     Dosage: 1 PILL MONTH
     Dates: start: 20091209
  2. BONIVA [Suspect]
     Indication: OSTEOPOROSIS
     Dosage: 1 PILL MONTH
     Dates: start: 20100109

REACTIONS (9)
  - ARTHRALGIA [None]
  - BREAST PAIN [None]
  - EYE DISORDER [None]
  - FAECES HARD [None]
  - FEELING ABNORMAL [None]
  - MUSCULOSKELETAL STIFFNESS [None]
  - MYALGIA [None]
  - PAIN IN JAW [None]
  - TOOTHACHE [None]
